FAERS Safety Report 7893453-8 (Version None)
Quarter: 2011Q4

REPORT INFORMATION
  Report Type: 
  Country: None (occurrence: None)
  Receive Date: 20111104
  Receipt Date: 20110426
  Transmission Date: 20120403
  Serious: Yes (Other)
  Sender: FDA-Public Use
  Company Number: IT-ROCHE-GNE314350

PATIENT
  Sex: Female

DRUGS (2)
  1. NUTROPIN AQ [Suspect]
     Indication: GROWTH HORMONE DEFICIENCY
     Dosage: STRENGTH: 10 MG/2ML, 1.6 MG X 6 GG (0.033 MG/KG/DAY)
     Route: 058
     Dates: start: 20110126
  2. NUTROPIN AQ [Suspect]
     Dosage: STRENGTH: 10 MG/2ML, 1.6 MG X 6 GG (0.033 MG/KG/DAY)
     Route: 058

REACTIONS (1)
  - BENIGN INTRACRANIAL HYPERTENSION [None]
